FAERS Safety Report 16599117 (Version 4)
Quarter: 2019Q3

REPORT INFORMATION
  Report Type: Spontaneous
  Country: FR (occurrence: FR)
  Receive Date: 20190719
  Receipt Date: 20190806
  Transmission Date: 20191004
  Serious: Yes (Other)
  Sender: FDA-Public Use
  Company Number: PHHY2019FR155388

PATIENT
  Age: 53 Year
  Sex: Female

DRUGS (4)
  1. CASPOFUNGIN ACETATE. [Suspect]
     Active Substance: CASPOFUNGIN ACETATE
     Indication: CANDIDA INFECTION
     Dosage: 70 MG, QD
     Route: 065
     Dates: start: 20180704, end: 20180710
  2. CASPOFUNGIN ACETATE. [Suspect]
     Active Substance: CASPOFUNGIN ACETATE
     Indication: ENDOCARDITIS CANDIDA
     Dosage: 140 MG, QD
     Route: 065
     Dates: start: 20180711, end: 20180714
  3. CASPOFUNGIN ACETATE. [Suspect]
     Active Substance: CASPOFUNGIN ACETATE
     Dosage: 70 MG, QD (604 MG)
     Route: 065
     Dates: start: 20180704, end: 20180711
  4. CASPOFUNGIN ACETATE. [Suspect]
     Active Substance: CASPOFUNGIN ACETATE
     Dosage: 11 MG, QD (604 MG)
     Route: 065
     Dates: start: 20180711, end: 20180714

REACTIONS (3)
  - Pathogen resistance [Unknown]
  - Candida infection [Recovering/Resolving]
  - Drug ineffective [Unknown]

NARRATIVE: CASE EVENT DATE: 201807
